FAERS Safety Report 5907341-7 (Version None)
Quarter: 2008Q4

REPORT INFORMATION
  Report Type: 
  Country: None (occurrence: None)
  Receive Date: 20081003
  Receipt Date: 20080923
  Transmission Date: 20090506
  Serious: Yes (Hospitalization)
  Sender: FDA-Public Use
  Company Number: ES-WATSON-2008-05675

PATIENT
  Age: 30 Year
  Sex: Female

DRUGS (6)
  1. AFEDITAB (WATSON LABORATORIES) [Suspect]
     Indication: PREMATURE LABOUR
     Dosage: 20 MG, Q6H AFTER IV TOCOLYSIS SUSPENDED
     Route: 048
     Dates: start: 20060101, end: 20060101
  2. AFEDITAB (WATSON LABORATORIES) [Suspect]
     Dosage: 20 MG, Q 20 MIN
     Route: 060
     Dates: start: 20060101, end: 20060101
  3. BETAMETHASONE SODIUM PHOSPHATE (WATSON LABORATORIES) [Suspect]
     Indication: PREMATURE LABOUR
     Dosage: 12 MG, Q24H (2 DOSES)
     Route: 030
     Dates: start: 20060101, end: 20060101
  4. RINGER LACTATE                     /01126301/ [Suspect]
     Indication: PREMATURE LABOUR
     Dosage: 500 ML, WITHIN 45 MINUTES
     Route: 042
     Dates: start: 20060101, end: 20060101
  5. RITODRINE HYDROCHLORIDE [Suspect]
     Indication: PREMATURE LABOUR
     Dosage: 15 ML/HOUR (60MG/500ML SERUM)
     Route: 042
     Dates: start: 20060101, end: 20060101
  6. PANTOMICINA                        /00020904/ [Concomitant]
     Indication: PREMATURE LABOUR
     Dosage: 500 MG, Q 6 HOURS
     Route: 042
     Dates: start: 20060101, end: 20060101

REACTIONS (3)
  - ACUTE PULMONARY OEDEMA [None]
  - CAESAREAN SECTION [None]
  - POTENTIATING DRUG INTERACTION [None]
